FAERS Safety Report 7871751-1 (Version None)
Quarter: 2011Q4

REPORT INFORMATION
  Report Type: 
  Country: None (occurrence: None)
  Receive Date: 20111029
  Receipt Date: 20110307
  Transmission Date: 20120403
  Serious: Yes (Other)
  Sender: FDA-Public Use
  Company Number: US-AMGEN-USASP2011012932

PATIENT
  Age: 54 Year
  Sex: Female
  Weight: 62.585 kg

DRUGS (3)
  1. ENBREL [Suspect]
     Indication: PRODUCT USED FOR UNKNOWN INDICATION
     Dosage: UNK
  2. HUMIRA [Concomitant]
     Indication: RHEUMATOID ARTHRITIS
     Dosage: 40 MG, QWK
     Route: 058
     Dates: start: 20100901
  3. HUMIRA [Concomitant]
     Dosage: 40 MG, QWK
     Route: 058
     Dates: start: 20100101, end: 20100701

REACTIONS (6)
  - INJECTION SITE ERYTHEMA [None]
  - DRUG HYPERSENSITIVITY [None]
  - INJECTION SITE URTICARIA [None]
  - INJECTION SITE PRURITUS [None]
  - URTICARIA [None]
  - NASOPHARYNGITIS [None]
